FAERS Safety Report 10249197 (Version 3)
Quarter: 2015Q3

REPORT INFORMATION
  Report Type: Spontaneous
  Country: US (occurrence: US)
  Receive Date: 20140620
  Receipt Date: 20150824
  Transmission Date: 20151125
  Serious: Yes (Life-Threatening, Hospitalization, Disabling, Other)
  Sender: FDA-Public Use
  Company Number: US-BAYER-2014-089565

PATIENT
  Age: 34 Year
  Sex: Female

DRUGS (15)
  1. TRAMADOL. [Concomitant]
     Active Substance: TRAMADOL
  2. MIRENA [Suspect]
     Active Substance: LEVONORGESTREL
     Indication: CONTRACEPTION
     Dosage: 20 MCG/24HR, CONT
     Route: 015
     Dates: start: 20080125, end: 20130130
  3. LORATADINE. [Concomitant]
     Active Substance: LORATADINE
  4. OMEPRAZOLE. [Concomitant]
     Active Substance: OMEPRAZOLE
  5. PREDNISONE. [Concomitant]
     Active Substance: PREDNISONE
  6. CALCIUM [Concomitant]
     Active Substance: CALCIUM
  7. VITAMIN B12 [Concomitant]
     Active Substance: CYANOCOBALAMIN
  8. MIRENA [Suspect]
     Active Substance: LEVONORGESTREL
     Indication: CONTRACEPTION
     Dosage: 20 MCG/24HR, CONT
     Route: 015
     Dates: start: 20130130
  9. FLONASE [Concomitant]
     Active Substance: FLUTICASONE PROPIONATE
  10. NAPROSYN [Concomitant]
     Active Substance: NAPROXEN
  11. VICODIN [Concomitant]
     Active Substance: ACETAMINOPHEN\HYDROCODONE BITARTRATE
  12. IMITREX [Concomitant]
     Active Substance: SUMATRIPTAN\SUMATRIPTAN SUCCINATE
     Dosage: UNK UNK, PRN
  13. PREVACID [Concomitant]
     Active Substance: LANSOPRAZOLE
  14. CLARITIN [Concomitant]
     Active Substance: LORATADINE
  15. FLEXERIL [Concomitant]
     Active Substance: CYCLOBENZAPRINE HYDROCHLORIDE

REACTIONS (10)
  - Uterine perforation [None]
  - Genital haemorrhage [None]
  - Procedural pain [None]
  - Post procedural infection [None]
  - Balance disorder [None]
  - Injury [None]
  - Pain [None]
  - Abdominal pain lower [None]
  - General physical health deterioration [None]
  - Device issue [None]

NARRATIVE: CASE EVENT DATE: 20080718
